FAERS Safety Report 4300616-7 (Version None)
Quarter: 2004Q1

REPORT INFORMATION
  Report Type: 
  Country: None (occurrence: None)
  Receive Date: 20040218
  Receipt Date: 20040129
  Transmission Date: 20041129
  Serious: Yes (Other)
  Sender: FDA-Public Use
  Company Number: USA021022157

PATIENT
  Age: 72 Year
  Sex: Female
  Weight: 94 kg

DRUGS (1)
  1. HUMULIN N [Suspect]
     Indication: DIABETES MELLITUS
     Dosage: 41 U/DAY
     Dates: start: 19990101

REACTIONS (4)
  - BLOOD GLUCOSE DECREASED [None]
  - INJECTION SITE HAEMORRHAGE [None]
  - RETINAL HAEMORRHAGE [None]
  - VISUAL ACUITY REDUCED [None]
